FAERS Safety Report 4552392-0 (Version None)
Quarter: 2005Q1

REPORT INFORMATION
  Report Type: 
  Country: None (occurrence: None)
  Receive Date: 20050114
  Receipt Date: 20040414
  Transmission Date: 20050727
  Serious: No
  Sender: FDA-Public Use
  Company Number: US-GLAXOSMITHKLINE-A0507168A

PATIENT
  Age: 27 Year
  Sex: Male

DRUGS (4)
  1. IMITREX [Suspect]
     Indication: DRUG USE FOR UNKNOWN INDICATION
     Dosage: 6MG AS REQUIRED
     Route: 058
     Dates: start: 20040413
  2. ALTACE [Concomitant]
  3. GLUCOPHAGE XR [Concomitant]
  4. ACTOS [Concomitant]

REACTIONS (2)
  - BURNING SENSATION [None]
  - PETECHIAE [None]
